FAERS Safety Report 5713702-1 (Version None)
Quarter: 2008Q2

REPORT INFORMATION
  Report Type: 
  Country: None (occurrence: None)
  Receive Date: 20080418
  Receipt Date: 20080407
  Transmission Date: 20081010
  Serious: Yes (Other)
  Sender: FDA-Public Use
  Company Number: ENT 2008-0054

PATIENT
  Age: 73 Year
  Sex: Male

DRUGS (4)
  1. COMTAN [Suspect]
     Indication: DRUG EFFECT DECREASED
     Dosage: 300 MG ORAL
     Route: 048
     Dates: start: 20071227, end: 20080221
  2. CARBIDOPA AND LEVODOPA [Concomitant]
  3. DOPS [Concomitant]
  4. PRAMIPEXOLE DIHYDROCHLORIDE [Concomitant]

REACTIONS (1)
  - BLOOD CREATINE PHOSPHOKINASE INCREASED [None]
